FAERS Safety Report 18568701 (Version 1)
Quarter: 2020Q4

REPORT INFORMATION
  Report Type: Spontaneous
  Country: US (occurrence: US)
  Receive Date: 20201202
  Receipt Date: 20201202
  Transmission Date: 20210114
  Serious: Yes (Death)
  Sender: FDA-Public Use
  Company Number: US-CELGENEUS-USA-20201106975

PATIENT
  Age: 78 Year
  Sex: Male
  Weight: 88.08 kg

DRUGS (3)
  1. REVLIMID [Suspect]
     Active Substance: LENALIDOMIDE
     Indication: OFF LABEL USE
  2. REVLIMID [Suspect]
     Active Substance: LENALIDOMIDE
     Indication: DIFFUSE LARGE B-CELL LYMPHOMA
  3. REVLIMID [Suspect]
     Active Substance: LENALIDOMIDE
     Indication: METASTASIS
     Dosage: 15 MILLIGRAM
     Route: 048
     Dates: start: 20201022, end: 20201022

REACTIONS (1)
  - Death [Fatal]

NARRATIVE: CASE EVENT DATE: 20201124
